FAERS Safety Report 5502108-6 (Version None)
Quarter: 2007Q4

REPORT INFORMATION
  Report Type: 
  Country: None (occurrence: None)
  Receive Date: 20071026
  Receipt Date: 20071018
  Transmission Date: 20080405
  Serious: Yes (Death, Hospitalization)
  Sender: FDA-Public Use
  Company Number: 2007-02747

PATIENT
  Age: 62 Year
  Sex: Female
  Weight: 70 kg

DRUGS (3)
  1. VELCADE [Suspect]
     Indication: DRUG USE FOR UNKNOWN INDICATION
     Dosage: 1.30 MG/M2, INTRAVENOUS
     Route: 042
     Dates: start: 20070302, end: 20070314
  2. OMEPRAZOLE [Concomitant]
  3. VALORON (TILIDINE HYDROCHLORIDE) [Concomitant]

REACTIONS (2)
  - MULTI-ORGAN FAILURE [None]
  - PULMONARY HAEMORRHAGE [None]
